FAERS Safety Report 8279105-3 (Version None)
Quarter: 2012Q2

REPORT INFORMATION
  Report Type: 
  Country: None (occurrence: None)
  Receive Date: 20120412
  Receipt Date: 20111221
  Transmission Date: 20120825
  Serious: No
  Sender: FDA-Public Use
  Company Number: US-ASTRAZENECA-2011SE36426

PATIENT
  Age: 59 Year
  Sex: Female
  Weight: 64.9 kg

DRUGS (26)
  1. LISINOPRIL [Suspect]
     Route: 048
  2. CRESTOR [Suspect]
     Route: 048
  3. POTASSIUM CHLORIDE [Concomitant]
  4. AZITHROMYCIN [Concomitant]
  5. UNSPECIFIED ANTIBIOTICS [Concomitant]
  6. CHOLESTYRAMINE [Concomitant]
  7. CLEOCIN HYDROCHLORIDE [Concomitant]
  8. CLONIDINE [Concomitant]
  9. HYDRALAZINE HCL [Concomitant]
  10. LEVAQUIN [Concomitant]
  11. SOMA [Concomitant]
  12. VITAMIN D [Concomitant]
  13. NEXIUM [Suspect]
     Route: 048
  14. CARVEDILOL [Concomitant]
  15. PHENERGAN HCL [Concomitant]
  16. VERMOX [Concomitant]
  17. ESOMEPRAZOLE MAGNESIUM [Concomitant]
  18. FUROSEMIDE [Concomitant]
  19. LORTAB [Concomitant]
  20. ALBUTEROL [Concomitant]
  21. LOVENOX [Concomitant]
  22. XANAX [Concomitant]
  23. CEFTIN [Concomitant]
  24. CYMBALTA [Concomitant]
  25. MAALOX THERAPEUTIC CONCENTRATE [Concomitant]
  26. MEPRON [Concomitant]

REACTIONS (5)
  - GASTROOESOPHAGEAL REFLUX DISEASE [None]
  - DRUG DOSE OMISSION [None]
  - LYME DISEASE [None]
  - ABDOMINAL PAIN UPPER [None]
  - GASTRITIS [None]
